FAERS Safety Report 12679203 (Version 2)
Quarter: 2016Q3

REPORT INFORMATION
  Report Type: Spontaneous
  Country: AR (occurrence: AR)
  Receive Date: 20160824
  Receipt Date: 20160909
  Transmission Date: 20161109
  Serious: Yes (Other)
  Sender: FDA-Public Use
  Company Number: AR-PFIZER INC-2016118036

PATIENT
  Age: 48 Year
  Sex: Female

DRUGS (1)
  1. XALKORI [Suspect]
     Active Substance: CRIZOTINIB
     Indication: NON-SMALL CELL LUNG CANCER METASTATIC
     Dosage: 200 MG, 2X/DAY
     Dates: start: 20140624, end: 20160209

REACTIONS (6)
  - Non-small cell lung cancer metastatic [Recovering/Resolving]
  - Hepatic cyst [Recovering/Resolving]
  - Lung cyst [Recovering/Resolving]
  - Viral infection [Recovering/Resolving]
  - Pain [Recovering/Resolving]
  - Disease progression [Recovering/Resolving]

NARRATIVE: CASE EVENT DATE: 201512
